FAERS Safety Report 8594916-2 (Version None)
Quarter: 2012Q3

REPORT INFORMATION
  Report Type: 
  Country: None (occurrence: None)
  Receive Date: 20120815
  Receipt Date: 20120813
  Transmission Date: 20120928
  Serious: Yes (Other)
  Sender: FDA-Public Use
  Company Number: US-PFIZER INC-2012198397

PATIENT
  Age: 20 Year
  Sex: Female

DRUGS (2)
  1. PRISTIQ [Suspect]
     Indication: DEPRESSION
  2. PRISTIQ [Suspect]
     Indication: ANXIETY
     Dosage: 50 MG,DAILY
     Dates: start: 20120701, end: 20120801

REACTIONS (2)
  - URTICARIA [None]
  - SWOLLEN TONGUE [None]
